FAERS Safety Report 9735860 (Version 1)
Quarter: 2013Q4

REPORT INFORMATION
  Report Type: Spontaneous
  Country: US (occurrence: US)
  Receive Date: 20131206
  Receipt Date: 20131206
  Transmission Date: 20140711
  Serious: No
  Sender: FDA-Public Use
  Company Number: US-GILEAD-2009-0024179

PATIENT
  Sex: Female
  Weight: 84.91 kg

DRUGS (14)
  1. LETAIRIS [Suspect]
     Indication: PULMONARY ARTERIAL HYPERTENSION
     Route: 048
     Dates: start: 20090702
  2. VENTAVIS [Concomitant]
  3. REVATIO [Concomitant]
  4. WARFARIN [Concomitant]
  5. FUROSEMIDE [Concomitant]
  6. DILAUDID [Concomitant]
  7. LORAZEPAM [Concomitant]
  8. SOMA [Concomitant]
  9. TOPAMAX [Concomitant]
  10. ZOLOFT [Concomitant]
  11. NEXIUM [Concomitant]
  12. FOLIC ACID [Concomitant]
  13. POTASSIUM [Concomitant]
  14. PROMETHAZINE [Concomitant]

REACTIONS (1)
  - Cardiac flutter [Unknown]
